FAERS Safety Report 17588267 (Version 6)
Quarter: 2021Q1

REPORT INFORMATION
  Report Type: Report from Study
  Country: US (occurrence: US)
  Receive Date: 20200326
  Receipt Date: 20210218
  Transmission Date: 20210419
  Serious: Yes (Life-Threatening, Hospitalization)
  Sender: FDA-Public Use
  Company Number: NVSC2020US084522

PATIENT
  Age: 19 Year
  Sex: Male

DRUGS (13)
  1. HYDROXYZINE [Concomitant]
     Active Substance: HYDROXYZINE HYDROCHLORIDE
     Indication: VOMITING
  2. METHOTREXATE. [Suspect]
     Active Substance: METHOTREXATE
     Indication: ACUTE LYMPHOCYTIC LEUKAEMIA
     Dosage: 4.6 MILLIGRAM
     Route: 037
     Dates: start: 20200309, end: 20200309
  3. KYTRIL [Concomitant]
     Active Substance: GRANISETRON HYDROCHLORIDE
     Indication: NAUSEA
     Dosage: 1 MG, PRN
     Route: 048
     Dates: start: 20190311
  4. HYDROXYZINE [Concomitant]
     Active Substance: HYDROXYZINE HYDROCHLORIDE
     Indication: NAUSEA
     Dosage: 25 MG, PRN
     Route: 048
     Dates: start: 20190218
  5. BACTRIM DS [Concomitant]
     Active Substance: SULFAMETHOXAZOLE\TRIMETHOPRIM
     Indication: PROPHYLAXIS
     Dosage: 800/160 MG, BID
     Route: 048
     Dates: start: 20190316
  6. INC424A [Suspect]
     Active Substance: RUXOLITINIB
     Dosage: 110 MG, BID
     Route: 048
     Dates: start: 20190722
  7. INC424A [Suspect]
     Active Substance: RUXOLITINIB
     Indication: ACUTE LYMPHOCYTIC LEUKAEMIA
     Dosage: 105 MG, BID
     Route: 048
     Dates: start: 20190218, end: 20190304
  8. INC424A [Suspect]
     Active Substance: RUXOLITINIB
     Dosage: 105 MG, BID
     Route: 048
     Dates: start: 20190325, end: 20190408
  9. INC424A [Suspect]
     Active Substance: RUXOLITINIB
     Dosage: 105 MG, BID
     Route: 048
     Dates: start: 20190430, end: 20190514
  10. PREDNISONE. [Suspect]
     Active Substance: PREDNISONE
     Indication: ACUTE LYMPHOCYTIC LEUKAEMIA
     Dosage: 4.6 MILLIGRAM
     Route: 048
     Dates: start: 20200309, end: 20200309
  11. MOTRIN [Concomitant]
     Active Substance: IBUPROFEN
     Indication: BACK PAIN
     Dosage: 600 MG
     Route: 048
     Dates: start: 20190316
  12. INC424A [Suspect]
     Active Substance: RUXOLITINIB
     Dosage: 105 MG, BID
     Route: 048
     Dates: start: 20190618, end: 20190701
  13. VINCRISTINE [Suspect]
     Active Substance: VINCRISTINE
     Indication: ACUTE LYMPHOCYTIC LEUKAEMIA
     Dosage: 2 MILLIGRAM
     Route: 042
     Dates: start: 20200309, end: 20200309

REACTIONS (2)
  - Anaemia [Recovered/Resolved]
  - Pain in extremity [Recovered/Resolved]

NARRATIVE: CASE EVENT DATE: 20200316
